FAERS Safety Report 6087308-1 (Version None)
Quarter: 2009Q1

REPORT INFORMATION
  Report Type: 
  Country: None (occurrence: None)
  Receive Date: 20090223
  Receipt Date: 20090218
  Transmission Date: 20090719
  Serious: Yes (Other)
  Sender: FDA-Public Use
  Company Number: A0769121A

PATIENT
  Age: 73 Year
  Sex: Male

DRUGS (4)
  1. AVODART [Suspect]
     Indication: BENIGN PROSTATIC HYPERPLASIA
     Dosage: 1TAB AT NIGHT
     Route: 048
     Dates: end: 20090214
  2. LIPITOR [Concomitant]
  3. SINEMET [Concomitant]
  4. VESICARE [Concomitant]

REACTIONS (1)
  - PARALYSIS [None]
